FAERS Safety Report 15464752 (Version 2)
Quarter: 2019Q4

REPORT INFORMATION
  Report Type: Spontaneous
  Country: US (occurrence: US)
  Receive Date: 20181004
  Receipt Date: 20191107
  Transmission Date: 20200122
  Serious: Yes (Other)
  Sender: FDA-Public Use
  Company Number: US-ASTRAZENECA-2018SF24810

PATIENT
  Age: 27570 Day
  Sex: Male
  Weight: 72.6 kg

DRUGS (38)
  1. PROTONIX [Suspect]
     Active Substance: PANTOPRAZOLE SODIUM
     Indication: BACK PAIN
     Route: 065
     Dates: start: 2014, end: 2016
  2. MAGNESIUM [Concomitant]
     Active Substance: MAGNESIUM
  3. HYDROCODONE-ACETAMINOPHEN [Concomitant]
     Active Substance: ACETAMINOPHEN\HYDROCODONE
     Dosage: 5-500 MG
  4. FLUTICASONE PROPIONATE. [Concomitant]
     Active Substance: FLUTICASONE PROPIONATE
  5. MULTI-VIT [Concomitant]
     Active Substance: VITAMINS
  6. EYE VIT [Concomitant]
  7. VITAMIN E [Concomitant]
     Active Substance: .ALPHA.-TOCOPHEROL
  8. URO-MAG [Concomitant]
     Dosage: 84.5 MG (140 MG) ORAL CAPSULE
  9. TOPROL XL [Concomitant]
     Active Substance: METOPROLOL SUCCINATE
     Dosage: 25 MG ORAL EXTENDED-RELEASE TABLET
  10. ZETIA [Concomitant]
     Active Substance: EZETIMIBE
     Dosage: 10 MG DAILY.
  11. PIROXICAM. [Concomitant]
     Active Substance: PIROXICAM
     Dosage: 20 MG CAPSULE
  12. RANITIDINE. [Concomitant]
     Active Substance: RANITIDINE
  13. ZANTAC [Concomitant]
     Active Substance: RANITIDINE HYDROCHLORIDE
  14. SUPERDOPHILUS [Concomitant]
     Dosage: 1 CAPSULE BY MOUTH DAILY
  15. MEDROL [Concomitant]
     Active Substance: METHYLPREDNISOLONE
     Dosage: 4 MG ORAL TABLET
  16. AMOXICILLIN. [Concomitant]
     Active Substance: AMOXICILLIN
     Route: 065
  17. NORVASC [Concomitant]
     Active Substance: AMLODIPINE BESYLATE
     Route: 065
  18. PROTONIX [Suspect]
     Active Substance: PANTOPRAZOLE SODIUM
     Indication: BACK PAIN
     Dosage: 40.0MG UNKNOWN
     Route: 065
     Dates: start: 20141201
  19. CALCIUM [Concomitant]
     Active Substance: CALCIUM
  20. CYCLOBENZAPRINE HCL [Concomitant]
     Active Substance: CYCLOBENZAPRINE HYDROCHLORIDE
     Dosage: 10 MG
  21. PRAVASTATIN. [Concomitant]
     Active Substance: PRAVASTATIN
  22. FLONASE [Concomitant]
     Active Substance: FLUTICASONE PROPIONATE
     Dosage: 50 MCG/ACTUATION NASAL SPRAY
  23. GUAIFENESIN AC [Concomitant]
     Active Substance: CODEINE PHOSPHATE\GUAIFENESIN
     Dosage: 10-100 MG/5 ML ORAL LIQUID
  24. PROTONIX [Suspect]
     Active Substance: PANTOPRAZOLE SODIUM
     Indication: BACK PAIN
     Dosage: GENERIC40.0MG UNKNOWN
     Route: 065
  25. PRAVACHOL [Concomitant]
     Active Substance: PRAVASTATIN SODIUM
     Dosage: 20 MG ORAL TABLET
  26. PENNSAID [Concomitant]
     Active Substance: DICLOFENAC SODIUM
     Dosage: 20 MG/GRAM /ACTUATION
  27. OMEGA [Concomitant]
     Active Substance: CONVALLARIA MAJALIS\CRATAEGUS LAEVIGATA LEAF\PROXYPHYLLINE
     Dosage: 140 MG B.I.D.
  28. PROMETHAZINE-CODEINE [Concomitant]
     Active Substance: CODEINE PHOSPHATE\PROMETHAZINE
     Dosage: 6.25-10 MG/5ML
  29. CEFTIN [Concomitant]
     Active Substance: CEFUROXIME AXETIL
     Dosage: 250 MG ORAL TABLET
  30. VIOXX [Concomitant]
     Active Substance: ROFECOXIB
     Route: 065
  31. COQ10 [Concomitant]
     Active Substance: UBIDECARENONE
  32. NEXIUM [Suspect]
     Active Substance: ESOMEPRAZOLE MAGNESIUM
     Indication: BACK PAIN
     Route: 048
     Dates: start: 2011
  33. VITAMIN D3 [Concomitant]
     Active Substance: CHOLECALCIFEROL
  34. ASPIRIN. [Concomitant]
     Active Substance: ASPIRIN
     Dosage: 81 MG ORAL TABLET
  35. NAPROXEN. [Concomitant]
     Active Substance: NAPROXEN
     Dosage: 500 MG ORAL TABLET
  36. CALCIUM [Concomitant]
     Active Substance: CALCIUM
     Dosage: DAILY
  37. ONDANSETRON [Concomitant]
     Active Substance: ONDANSETRON
  38. QUESTRAN [Concomitant]
     Active Substance: CHOLESTYRAMINE
     Route: 065

REACTIONS (5)
  - Renal failure [Not Recovered/Not Resolved]
  - Renal artery stenosis [Not Recovered/Not Resolved]
  - Renal artery arteriosclerosis [Unknown]
  - Chronic kidney disease [Unknown]
  - Renal impairment [Not Recovered/Not Resolved]

NARRATIVE: CASE EVENT DATE: 20110325
